FAERS Safety Report 16735846 (Version 1)
Quarter: 2019Q3

REPORT INFORMATION
  Report Type: Spontaneous
  Country: US (occurrence: US)
  Receive Date: 20190708
  Receipt Date: 20190708
  Transmission Date: 20191005
  Serious: No
  Sender: FDA-Public Use
  Company Number: None

PATIENT
  Sex: Male

DRUGS (2)
  1. SIMPONI [Suspect]
     Active Substance: GOLIMUMAB
     Indication: SENILE OSTEOPOROSIS
     Dosage: ?          OTHER DOSE:50MG/0.5ML;?
     Route: 058
     Dates: start: 201801
  2. SIMPONI [Suspect]
     Active Substance: GOLIMUMAB
     Indication: PSORIATIC ARTHROPATHY
     Dosage: ?          OTHER DOSE:50MG/0.5ML;?
     Route: 058
     Dates: start: 201801

REACTIONS (2)
  - Liver function test increased [None]
  - Liver injury [None]
